FAERS Safety Report 20671345 (Version 1)
Quarter: 2022Q2

REPORT INFORMATION
  Report Type: Spontaneous
  Country: US (occurrence: US)
  Receive Date: 20220404
  Receipt Date: 20220404
  Transmission Date: 20220720
  Serious: No
  Sender: FDA-Public Use
  Company Number: US-SA-SAC20220331001590

PATIENT
  Age: 56 Year
  Sex: Male

DRUGS (1)
  1. CAPRELSA [Suspect]
     Active Substance: VANDETANIB
     Indication: Lung neoplasm malignant
     Dosage: 300 MG, QD
     Route: 048
     Dates: start: 20200707

REACTIONS (1)
  - Furuncle [Unknown]
